FAERS Safety Report 9479268 (Version 1)
Quarter: 2013Q3

REPORT INFORMATION
  Report Type: Spontaneous
  Country: SK (occurrence: SK)
  Receive Date: 20130827
  Receipt Date: 20130827
  Transmission Date: 20140515
  Serious: Yes (Life-Threatening, Hospitalization)
  Sender: FDA-Public Use
  Company Number: SK-PFIZER INC-2013246364

PATIENT
  Age: 73 Year
  Sex: Female
  Weight: 65 kg

DRUGS (6)
  1. ACCUZIDE [Suspect]
     Indication: ESSENTIAL HYPERTENSION
     Dosage: UNK, ONCE DAILY
     Route: 048
     Dates: end: 20130807
  2. AGEN(AMLODIPINE BESILATE) [Concomitant]
     Indication: HYPERTENSION
     Dosage: 5 MG, 1X/DAY
     Route: 048
  3. CYNT [Concomitant]
     Indication: HYPERTENSION
     Dosage: UNK
     Route: 048
  4. VENTOLIN [Concomitant]
     Indication: ASTHMA
     Dosage: UNK, AS NEEDED
     Route: 055
  5. SPIRIVA [Concomitant]
     Indication: ASTHMA
     Route: 055
  6. LORATADINE [Concomitant]
     Indication: ASTHMA
     Dosage: UNK
     Route: 048

REACTIONS (1)
  - Hyponatraemia [Recovered/Resolved]
